FAERS Safety Report 7796631-1 (Version None)
Quarter: 2011Q4

REPORT INFORMATION
  Report Type: 
  Country: None (occurrence: None)
  Receive Date: 20111005
  Receipt Date: 20110211
  Transmission Date: 20120403
  Serious: No
  Sender: FDA-Public Use
  Company Number: US-BAYER-2011-015121

PATIENT
  Age: 68 Year
  Sex: Male

DRUGS (4)
  1. ANTIHYPERTENSIVES [Concomitant]
  2. ASPIRIN [Concomitant]
     Dosage: 81 MG, UNK
  3. ANTACIDS [Concomitant]
  4. LEVITRA [Suspect]
     Indication: ERECTILE DYSFUNCTION
     Dosage: 10 MG, PRN
     Route: 048
     Dates: start: 20101101

REACTIONS (1)
  - ERECTILE DYSFUNCTION [None]
